FAERS Safety Report 10194676 (Version 7)
Quarter: 2015Q1

REPORT INFORMATION
  Report Type: Report from Study
  Country: GB (occurrence: GB)
  Receive Date: 20140526
  Receipt Date: 20150310
  Transmission Date: 20150720
  Serious: Yes (Life-Threatening, Hospitalization)
  Sender: FDA-Public Use
  Company Number: GB-MERCK-1404GBR012450

PATIENT
  Age: 49 Year
  Sex: Male
  Weight: 105.8 kg

DRUGS (18)
  1. ACETAMINOPHEN AND CODEINE [Concomitant]
     Active Substance: ACETAMINOPHEN\CODEINE PHOSPHATE
     Indication: PAIN
     Dosage: UNK
     Dates: start: 20140115, end: 20140409
  2. EUMOVATE [Concomitant]
     Active Substance: CLOBETASONE BUTYRATE
     Indication: MYCOSIS FUNGOIDES
     Dosage: UNK
     Dates: start: 20140319
  3. PREDNISOLONE. [Concomitant]
     Active Substance: PREDNISOLONE
     Indication: MYCOSIS FUNGOIDES
     Dosage: UNK
     Route: 048
     Dates: start: 20131125
  4. CETRABEN EMOLLIENT CREAM [Concomitant]
     Indication: MYCOSIS FUNGOIDES
     Dosage: UNK
     Dates: start: 20140319
  5. DERMOVATE [Concomitant]
     Active Substance: CLOBETASOL
     Indication: MYCOSIS FUNGOIDES
     Dosage: UNK
     Dates: start: 20140319
  6. DALTEPARIN SODIUM [Concomitant]
     Active Substance: DALTEPARIN SODIUM
     Indication: ANTICOAGULANT THERAPY
     Dosage: UNK
     Dates: start: 20140320, end: 20140325
  7. FUCIBET [Concomitant]
     Indication: MYCOSIS FUNGOIDES
     Dosage: UNK
     Dates: start: 20140320
  8. PYRIDOXINE [Concomitant]
     Active Substance: PYRIDOXINE
     Indication: VITAMIN SUPPLEMENTATION
     Dosage: UNK
     Dates: start: 20140320
  9. SENNA [Concomitant]
     Active Substance: SENNA LEAF\SENNOSIDES\SENNOSIDES A AND B
     Dosage: UNK
     Dates: start: 20140320
  10. DEMEROL APAP [Concomitant]
     Indication: MYCOSIS FUNGOIDES
     Dosage: UNK
     Dates: start: 20140319
  11. OMEPRAZOLE. [Concomitant]
     Active Substance: OMEPRAZOLE
     Indication: GASTRIC PH DECREASED
     Dosage: UNK
     Dates: start: 20131125
  12. DOCUSATE SODIUM. [Concomitant]
     Active Substance: DOCUSATE SODIUM
  13. VORINOSTAT [Suspect]
     Active Substance: VORINOSTAT
     Indication: T-CELL LYMPHOMA
     Dosage: 400 MG, QD, CYCLE (28 DAYS)
     Route: 048
     Dates: start: 20140326, end: 20140404
  14. DOXEPIN HYDROCHLORIDE. [Concomitant]
     Active Substance: DOXEPIN HYDROCHLORIDE
     Indication: PRURITUS
     Dosage: UNK
     Dates: start: 20131125
  15. MORPHINE [Concomitant]
     Active Substance: MORPHINE
     Indication: PAIN
     Dosage: UNK
     Dates: start: 20131125
  16. MST (MAGNESIUM SALICYLATE) [Concomitant]
     Indication: PAIN
     Dosage: UNK
     Dates: start: 20140319
  17. PREGABALIN. [Concomitant]
     Active Substance: PREGABALIN
     Indication: PAIN
     Dosage: UNK
     Dates: start: 20140115
  18. ACETAMINOPHEN. [Concomitant]
     Active Substance: ACETAMINOPHEN
     Indication: PAIN
     Dosage: UNK
     Dates: start: 20140320

REACTIONS (4)
  - Neutropenia [Not Recovered/Not Resolved]
  - Sepsis [Not Recovered/Not Resolved]
  - Anaemia [Recovering/Resolving]
  - Thrombocytopenia [Not Recovered/Not Resolved]

NARRATIVE: CASE EVENT DATE: 20140402
